FAERS Safety Report 15623296 (Version 4)
Quarter: 2019Q1

REPORT INFORMATION
  Report Type: Spontaneous
  Country: US (occurrence: US)
  Receive Date: 20181115
  Receipt Date: 20190111
  Transmission Date: 20190417
  Serious: Yes (Other)
  Sender: FDA-Public Use
  Company Number: US-PFIZER INC-2018337009

PATIENT
  Sex: Female

DRUGS (6)
  1. ENBREL [Suspect]
     Active Substance: ETANERCEPT
     Dosage: UNK
     Route: 058
  2. METHOTREXATE SODIUM. [Suspect]
     Active Substance: METHOTREXATE SODIUM
     Dosage: UNK UNK, Q2WK
     Route: 065
  3. HUMIRA [Suspect]
     Active Substance: ADALIMUMAB
     Indication: RHEUMATOID ARTHRITIS
     Dosage: UNK
     Route: 058
  4. HUMIRA [Suspect]
     Active Substance: ADALIMUMAB
     Dosage: UNK, Q2WK (1 IN 2 WK)
     Route: 058
     Dates: end: 2018
  5. METHOTREXATE SODIUM. [Suspect]
     Active Substance: METHOTREXATE SODIUM
     Dosage: UNK, 1 IN 10 DAYS
     Route: 065
  6. HUMIRA [Suspect]
     Active Substance: ADALIMUMAB
     Dosage: UNK, 1 IN 10 D
     Route: 058
     Dates: start: 201806

REACTIONS (25)
  - Mouth ulceration [Recovered/Resolved]
  - Wrist fracture [Unknown]
  - Arthralgia [Unknown]
  - Weight decreased [Unknown]
  - Stomatitis [Recovered/Resolved]
  - Joint swelling [Unknown]
  - Fall [Unknown]
  - Mouth haemorrhage [Unknown]
  - Cataract [Recovering/Resolving]
  - Urticaria [Recovered/Resolved]
  - Fracture malunion [Unknown]
  - Joint effusion [Unknown]
  - Oral mucosal eruption [Recovering/Resolving]
  - Ageusia [Unknown]
  - Drug ineffective [Unknown]
  - Injection site pain [Unknown]
  - Drug hypersensitivity [Recovered/Resolved]
  - Sensitivity to weather change [Unknown]
  - Lip injury [Recovering/Resolving]
  - Pain [Unknown]
  - Temperature intolerance [Unknown]
  - Pollakiuria [Unknown]
  - Urinary tract infection [Unknown]
  - Peripheral swelling [Recovering/Resolving]
  - Pruritus allergic [Recovered/Resolved]

NARRATIVE: CASE EVENT DATE: 2017
